FAERS Safety Report 6111250-0 (Version None)
Quarter: 2009Q1

REPORT INFORMATION
  Report Type: 
  Country: None (occurrence: None)
  Receive Date: 20090311
  Receipt Date: 20090302
  Transmission Date: 20090719
  Serious: Yes (Hospitalization)
  Sender: FDA-Public Use
  Company Number: US-AVENTIS-200911647US

PATIENT
  Age: 71 Year
  Sex: Male
  Weight: 156.5 kg

DRUGS (15)
  1. LANTUS [Suspect]
     Route: 058
     Dates: start: 20070101
  2. OPTICLIK (INSULIN INJECTION PEN) [Suspect]
     Dates: start: 20070101
  3. ATENOLOL [Concomitant]
  4. GLIPIZIDE [Concomitant]
     Dosage: DOSE: 10 MG AM AND 10 MG PM
  5. WARFARIN SODIUM [Concomitant]
  6. GABAPENTIN [Concomitant]
  7. LEVOXYL [Concomitant]
  8. SEA KELP [Concomitant]
     Indication: THYROID DISORDER
  9. VITAMIN B-12 [Concomitant]
  10. HORSE CHESTNUT EXTRACT [Concomitant]
  11. FOLIC ACID [Concomitant]
  12. ALOE VERA GEL [Concomitant]
  13. BILBERRY [Concomitant]
  14. FLAXSEED OIL [Concomitant]
  15. COQ10 [Concomitant]

REACTIONS (5)
  - ABDOMINAL INFECTION [None]
  - HOSPITALISATION [None]
  - NAUSEA [None]
  - RASH [None]
  - SWELLING [None]
